FAERS Safety Report 9519252 (Version 2)
Quarter: 2013Q4

REPORT INFORMATION
  Report Type: Spontaneous
  Country: US (occurrence: US)
  Receive Date: 20130912
  Receipt Date: 20131018
  Transmission Date: 20140711
  Serious: Yes (Other)
  Sender: FDA-Public Use
  Company Number: US-ENDO PHARMACEUTICALS INC.-NUBN20130002

PATIENT
  Sex: Female

DRUGS (1)
  1. NUBAIN [Suspect]
     Indication: LABOUR PAIN
     Dosage: UNK
     Route: 065
     Dates: start: 2012

REACTIONS (1)
  - Peripartum cardiomyopathy [Recovered/Resolved]
